FAERS Safety Report 16036805 (Version 1)
Quarter: 2019Q1

REPORT INFORMATION
  Report Type: Spontaneous
  Country: US (occurrence: US)
  Receive Date: 20190305
  Receipt Date: 20190305
  Transmission Date: 20190418
  Serious: No
  Sender: FDA-Public Use
  Company Number: US-IMPAX LABORATORIES, LLC-2018-IPXL-02986

PATIENT
  Sex: Male

DRUGS (6)
  1. AMANTADINE. [Concomitant]
     Active Substance: AMANTADINE HYDROCHLORIDE
     Indication: DYSKINESIA
     Dosage: UNK, 2 /DAY (6 AM AND 2 PM)
     Route: 048
  2. RYTARY [Suspect]
     Active Substance: CARBIDOPA\LEVODOPA
     Dosage: 23.75/95 MG, ONE CAPSULES FIVE TIMES A DAY (AT 6 AM, 9 AM,12 PM, 3 PM AND 6 PM)
     Route: 065
     Dates: start: 2016
  3. TOPROL XL [Concomitant]
     Active Substance: METOPROLOL SUCCINATE
     Indication: CARDIAC DISORDER
     Dosage: UNK, ONCE A DAY
     Route: 065
  4. RYTARY [Suspect]
     Active Substance: CARBIDOPA\LEVODOPA
     Dosage: 36.25/145 MG, 2 CAPSULES 5 TIMES A DAY (AT 6 AM, 9 AM,12 PM, 3 PM AND 6 PM) AND ONE CAPSULE AT 11 PM
     Route: 065
     Dates: start: 2018
  5. RYTARY [Suspect]
     Active Substance: CARBIDOPA\LEVODOPA
     Indication: PARKINSON^S DISEASE
     Dosage: 36.25/145 MG, TWO CAPSULES FIVE TIMES A DAY (AT 6 AM, 9 AM, 12 PM, 3 PM AND 6 PM)
     Route: 065
     Dates: start: 2016, end: 2018
  6. WARFARIN [Concomitant]
     Active Substance: WARFARIN
     Indication: ANTICOAGULANT THERAPY
     Dosage: UNK, 1 /DAY
     Route: 065

REACTIONS (3)
  - Nocturia [Recovering/Resolving]
  - Body temperature increased [Recovering/Resolving]
  - Insomnia [Recovering/Resolving]
